FAERS Safety Report 8124582-1 (Version None)
Quarter: 2012Q1

REPORT INFORMATION
  Report Type: 
  Country: None (occurrence: None)
  Receive Date: 20120209
  Receipt Date: 20120201
  Transmission Date: 20120608
  Serious: Yes (Life-Threatening, Hospitalization)
  Sender: FDA-Public Use
  Company Number: CA-JNJFOC-20120202585

PATIENT
  Sex: Female

DRUGS (2)
  1. REMICADE [Suspect]
     Indication: SARCOIDOSIS
     Route: 042
     Dates: end: 20110901
  2. ALL OTHER THERAPEUTICS [Concomitant]
     Route: 065

REACTIONS (3)
  - PERICARDITIS [None]
  - HYPERSENSITIVITY [None]
  - PULMONARY OEDEMA [None]
